FAERS Safety Report 13567432 (Version 1)
Quarter: 2017Q2

REPORT INFORMATION
  Report Type: Spontaneous
  Country: US (occurrence: US)
  Receive Date: 20170522
  Receipt Date: 20170522
  Transmission Date: 20170830
  Serious: No
  Sender: FDA-Public Use
  Company Number: US-PFIZER INC-2017217548

PATIENT
  Age: 62 Year
  Sex: Female

DRUGS (1)
  1. IBRANCE [Suspect]
     Active Substance: PALBOCICLIB
     Dosage: 125 MG, CYCLIC (QD (21 DAYS ON/7DAYS OFF))
     Route: 048
     Dates: start: 20170505

REACTIONS (6)
  - Flatulence [Unknown]
  - Nausea [Unknown]
  - Dry skin [Unknown]
  - Hypoaesthesia [Unknown]
  - Feeling cold [Unknown]
  - Fatigue [Unknown]
